FAERS Safety Report 4490451-1 (Version None)
Quarter: 2004Q4

REPORT INFORMATION
  Report Type: 
  Country: None (occurrence: None)
  Receive Date: 20041028
  Receipt Date: 20041019
  Transmission Date: 20050328
  Serious: Yes (Other)
  Sender: FDA-Public Use
  Company Number: 200410988BVD

PATIENT
  Age: 40 Year
  Sex: Male
  Weight: 67 kg

DRUGS (9)
  1. MOXIFLOXACIN [Suspect]
     Indication: APPENDICITIS
     Dosage: 400 MG, TOTAL DAILY, INTRAVENOUS
     Route: 042
     Dates: start: 20040310
  2. DIPIDOLOR [Concomitant]
  3. FENTANYL [Concomitant]
  4. ULTIVA [Concomitant]
  5. ISOFLURANE [Concomitant]
  6. PANTOLAX [Concomitant]
  7. ATRACURIUM [Concomitant]
  8. TRAPANAL [Concomitant]
  9. PANCURONIUM [Concomitant]

REACTIONS (2)
  - BRADYCARDIA [None]
  - CARDIAC ARREST [None]
